FAERS Safety Report 12790305 (Version 1)
Quarter: 2016Q3

REPORT INFORMATION
  Report Type: Spontaneous
  Country: US (occurrence: US)
  Receive Date: 20160928
  Receipt Date: 20160928
  Transmission Date: 20161109
  Serious: Yes (Death)
  Sender: FDA-Public Use
  Company Number: US-RELYPSA-RLY2016002600

PATIENT
  Age: 68 Year
  Sex: Female

DRUGS (28)
  1. ACETAMINOPHEN. [Concomitant]
     Active Substance: ACETAMINOPHEN
  2. DULCOLAX (BISACODYL) [Concomitant]
     Active Substance: BISACODYL
  3. NEURONTIN [Concomitant]
     Active Substance: GABAPENTIN
  4. PANCREAZE                          /00150201/ [Concomitant]
  5. VITAMIN D3 [Concomitant]
     Active Substance: CHOLECALCIFEROL
  6. SODIUM BICARBONATE. [Concomitant]
     Active Substance: SODIUM BICARBONATE
  7. CALCIUM 500+D [Concomitant]
     Active Substance: CALCIUM\VITAMIN D
  8. MILK OF MAGNESIA [Concomitant]
     Active Substance: MAGNESIUM HYDROXIDE
  9. PERCOCET                           /00446701/ [Concomitant]
     Active Substance: ACETAMINOPHEN\OXYCODONE HYDROCHLORIDE\OXYCODONE TEREPHTHALATE
  10. CYMBALTA [Concomitant]
     Active Substance: DULOXETINE HYDROCHLORIDE
  11. METOLAZONE. [Concomitant]
     Active Substance: METOLAZONE
  12. FERROUS SULFATE. [Concomitant]
     Active Substance: FERROUS SULFATE
  13. OMEPRAZOLE. [Concomitant]
     Active Substance: OMEPRAZOLE
  14. CALCITRIOL. [Concomitant]
     Active Substance: CALCITRIOL
  15. COLACE [Concomitant]
     Active Substance: DOCUSATE SODIUM
  16. FLEET ENEMA [Concomitant]
     Active Substance: SODIUM PHOSPHATE, DIBASIC\SODIUM PHOSPHATE, MONOBASIC
  17. GLUCAGON EMERGENCY KIT [Concomitant]
     Active Substance: GLUCAGON
  18. LANTUS [Concomitant]
     Active Substance: INSULIN GLARGINE
  19. IPRATROPIUM BROMIDE. [Concomitant]
     Active Substance: IPRATROPIUM BROMIDE
  20. VELTASSA [Suspect]
     Active Substance: PATIROMER
     Indication: INTERSTITIAL LUNG DISEASE
     Dosage: 8.4 G, QD
     Route: 048
     Dates: start: 20160621
  21. ASPIRIN 81 [Concomitant]
     Active Substance: ASPIRIN
  22. ATORVASTATIN CALCIUM. [Concomitant]
     Active Substance: ATORVASTATIN CALCIUM
  23. HUMALOG MIX [Concomitant]
     Active Substance: INSULIN LISPRO
  24. ARANESP [Concomitant]
     Active Substance: DARBEPOETIN ALFA
  25. LOPERAMIDE HCL [Concomitant]
     Active Substance: LOPERAMIDE HYDROCHLORIDE
  26. ZOFRAN [Concomitant]
     Active Substance: ONDANSETRON HYDROCHLORIDE
  27. ZOSYN [Concomitant]
     Active Substance: PIPERACILLIN SODIUM\TAZOBACTAM SODIUM
  28. VANCOMYCIN HCL [Concomitant]
     Active Substance: VANCOMYCIN HYDROCHLORIDE
     Dosage: IN DEXTROSE

REACTIONS (1)
  - Death [Fatal]

NARRATIVE: CASE EVENT DATE: 20160908
